FAERS Safety Report 10191011 (Version 1)
Quarter: 2014Q2

REPORT INFORMATION
  Report Type: Spontaneous
  Country: US (occurrence: None)
  Receive Date: 20140521
  Receipt Date: 20140521
  Transmission Date: 20141212
  Serious: No
  Sender: FDA-Public Use
  Company Number: None

PATIENT
  Age: 80 Year
  Sex: Male
  Weight: 71.4 kg

DRUGS (1)
  1. MIRABEGRON [Suspect]
     Indication: URINARY INCONTINENCE
     Route: 048
     Dates: start: 20130523, end: 20130610

REACTIONS (2)
  - Nausea [None]
  - Vomiting [None]
